FAERS Safety Report 13676292 (Version 2)
Quarter: 2017Q2

REPORT INFORMATION
  Report Type: Report from Study
  Country: US (occurrence: US)
  Receive Date: 20170622
  Receipt Date: 20170630
  Transmission Date: 20170830
  Serious: Yes (Hospitalization)
  Sender: FDA-Public Use
  Company Number: US-ELI_LILLY_AND_COMPANY-US201706008366

PATIENT
  Age: 74 Year
  Sex: Male

DRUGS (3)
  1. INSULIN, LISPRO [Suspect]
     Active Substance: INSULIN LISPRO
     Indication: PRODUCT USED FOR UNKNOWN INDICATION
     Dosage: UNK, UNKNOWN
     Route: 058
  2. LANTUS [Concomitant]
     Active Substance: INSULIN GLARGINE
     Indication: DIABETES MELLITUS
     Dosage: 50 U, UNKNOWN
     Route: 065
  3. INSULIN, LISPRO [Suspect]
     Active Substance: INSULIN LISPRO
     Dosage: UNK, UNKNOWN
     Route: 058

REACTIONS (10)
  - Blood glucose increased [Not Recovered/Not Resolved]
  - Incoherent [Unknown]
  - Injection site infection [Recovered/Resolved]
  - Drug dose omission [Unknown]
  - Incorrect dose administered [Unknown]
  - Pancreatic disorder [Unknown]
  - Insomnia [Unknown]
  - Hyperhidrosis [Unknown]
  - Shock hypoglycaemic [Recovered/Resolved]
  - Blood glucose decreased [Not Recovered/Not Resolved]

NARRATIVE: CASE EVENT DATE: 20170612
